FAERS Safety Report 4982769-0 (Version None)
Quarter: 2006Q2

REPORT INFORMATION
  Report Type: 
  Country: None (occurrence: None)
  Receive Date: 20060425
  Receipt Date: 20060221
  Transmission Date: 20061013
  Serious: Yes (Hospitalization)
  Sender: FDA-Public Use
  Company Number: US-MERCK-0602USA05123

PATIENT
  Age: 39 Year
  Sex: Male
  Weight: 125 kg

DRUGS (6)
  1. VIOXX [Suspect]
     Indication: INFLAMMATION
     Route: 048
     Dates: start: 20010401, end: 20011201
  2. VIOXX [Suspect]
     Route: 048
     Dates: start: 20020101, end: 20021201
  3. VIOXX [Suspect]
     Route: 048
     Dates: start: 20030101, end: 20030701
  4. VIOXX [Suspect]
     Route: 048
     Dates: start: 20040901
  5. ADVIL [Concomitant]
     Route: 065
  6. TYLENOL (CAPLET) [Concomitant]
     Route: 065

REACTIONS (23)
  - ACUTE MYOCARDIAL INFARCTION [None]
  - ANXIETY [None]
  - ARTHRALGIA [None]
  - ARTHRITIS [None]
  - BACK PAIN [None]
  - CARDIOVASCULAR DISORDER [None]
  - CELLULITIS [None]
  - CHEST PAIN [None]
  - CONDITION AGGRAVATED [None]
  - CORONARY ARTERY OCCLUSION [None]
  - DEPRESSION [None]
  - ERECTILE DYSFUNCTION [None]
  - GASTRIC BYPASS [None]
  - HYPERLIPIDAEMIA [None]
  - HYPERTENSION [None]
  - INJURY [None]
  - MENISCUS LESION [None]
  - MYOCARDIAL ISCHAEMIA [None]
  - PAIN [None]
  - PNEUMOTHORAX [None]
  - ROTATOR CUFF SYNDROME [None]
  - STAPHYLOCOCCAL INFECTION [None]
  - WRIST FRACTURE [None]
